FAERS Safety Report 6793036-7 (Version None)
Quarter: 2010Q2

REPORT INFORMATION
  Report Type: 
  Country: None (occurrence: None)
  Receive Date: 20100624
  Receipt Date: 20081202
  Transmission Date: 20101027
  Serious: Yes (Other)
  Sender: FDA-Public Use
  Company Number: US-PFIZER INC-2008152299

PATIENT
  Age: 75 Year
  Sex: Male

DRUGS (4)
  1. SUTENT [Suspect]
     Indication: THYROID CANCER
     Dosage: 50 MG, UNK
     Route: 048
     Dates: start: 20080924, end: 20081022
  2. ALL OTHER THERAPEUTIC PRODUCTS [Concomitant]
     Indication: HYPERTENSION
     Dosage: 25 MG, UNK
     Route: 048
  3. SYNTHROID [Concomitant]
     Indication: THYROID OPERATION
     Dosage: 0.175 MG, UNK
     Route: 048
  4. NORVASC [Suspect]
     Indication: HYPERTENSION
     Dosage: 10 MG, UNK
     Route: 048

REACTIONS (3)
  - OEDEMA [None]
  - PALMAR-PLANTAR ERYTHRODYSAESTHESIA SYNDROME [None]
  - SKIN LESION [None]
